FAERS Safety Report 15776188 (Version 12)
Quarter: 2019Q3

REPORT INFORMATION
  Report Type: Report from Study
  Country: US (occurrence: US)
  Receive Date: 20181231
  Receipt Date: 20190926
  Transmission Date: 20191004
  Serious: No
  Sender: FDA-Public Use
  Company Number: US-IPSEN BIOPHARMACEUTICALS, INC.-2018-16861

PATIENT
  Age: 4 Year
  Sex: Male
  Weight: 19 kg

DRUGS (7)
  1. HYDROCORTISONE. [Concomitant]
     Active Substance: HYDROCORTISONE
     Indication: DERMATITIS
     Dosage: UNK
     Route: 061
     Dates: start: 20180929, end: 20190107
  2. DYSPORT [Suspect]
     Active Substance: ABOBOTULINUMTOXINA
     Indication: OFF LABEL USE
  3. BENADRYL [Concomitant]
     Active Substance: DIPHENHYDRAMINE HYDROCHLORIDE
     Indication: URTICARIA
     Dosage: UNKNOWN
     Route: 061
     Dates: start: 20190731
  4. ALBUTEROL. [Concomitant]
     Active Substance: ALBUTEROL
     Indication: WHEEZING
     Dates: start: 20171108
  5. DYSPORT [Suspect]
     Active Substance: ABOBOTULINUMTOXINA
     Indication: MUSCLE SPASTICITY
     Dosage: 450 IU (ADDUCTOR LONGUS, ADDUCTOR MAGNUS, ADDUCTOR BREVIS, TIBIALIS POSTERIOR AND ANTERIOR TIBIALIS)
     Route: 030
     Dates: start: 20180518
  6. BACLOFEN. [Concomitant]
     Active Substance: BACLOFEN
     Indication: MUSCLE SPASTICITY
     Dosage: TAKE 5 MG BID AND 10 MG QHS
     Dates: start: 20160325
  7. CLARITIN [Concomitant]
     Active Substance: LORATADINE
     Indication: URTICARIA
     Dates: start: 20190805

REACTIONS (9)
  - Joint instability [Recovered/Resolved]
  - Upper respiratory tract infection [Recovered/Resolved]
  - Dental caries [Recovered/Resolved]
  - Muscular weakness [Recovered/Resolved]
  - Dermatitis [Recovered/Resolved]
  - Foot deformity [Recovered/Resolved]
  - Sleep terror [Recovered/Resolved]
  - Urticaria [Recovered/Resolved]
  - Off label use [Unknown]

NARRATIVE: CASE EVENT DATE: 20180518
